FAERS Safety Report 10751085 (Version 1)
Quarter: 2015Q1

REPORT INFORMATION
  Report Type: Spontaneous
  Country: CO (occurrence: CO)
  Receive Date: 20150130
  Receipt Date: 20150130
  Transmission Date: 20150721
  Serious: Yes (Death)
  Sender: FDA-Public Use
  Company Number: CO-NOVOPROD-436199

PATIENT
  Age: 10 Year
  Sex: Female
  Weight: 26 kg

DRUGS (1)
  1. NOVOLIN R [Suspect]
     Active Substance: INSULIN HUMAN
     Indication: DIABETIC KETOACIDOSIS
     Dosage: 0.2 UNITS/ KG/ HOUR
     Route: 042
     Dates: start: 20150113, end: 20150113

REACTIONS (1)
  - Drug ineffective [Fatal]

NARRATIVE: CASE EVENT DATE: 20150113
